FAERS Safety Report 4981701-3 (Version None)
Quarter: 2006Q2

REPORT INFORMATION
  Report Type: 
  Country: None (occurrence: None)
  Receive Date: 20060420
  Receipt Date: 20060420
  Transmission Date: 20061013
  Serious: Yes (Life-Threatening, Hospitalization, Disabling, Other)
  Sender: FDA-Public Use
  Company Number: None

PATIENT
  Age: 44 Year
  Sex: Female
  Weight: 104.3273 kg

DRUGS (2)
  1. NEURONTIN [Suspect]
     Indication: ANALGESIC EFFECT
     Dosage: 1800 DAILY ORAL
     Route: 048
     Dates: start: 20010401, end: 20050327
  2. MIRAPEX [Suspect]
     Indication: RESTLESS LEGS SYNDROME
     Dosage: 1 MG DAILY ORAL
     Route: 048
     Dates: start: 20010501, end: 20050327

REACTIONS (12)
  - CARDIAC DISORDER [None]
  - CARDIAC FAILURE CONGESTIVE [None]
  - CARDIOMEGALY [None]
  - DECREASED INTEREST [None]
  - DYSPNOEA [None]
  - ECONOMIC PROBLEM [None]
  - HEPATIC FAILURE [None]
  - MYOCARDIAL INFARCTION [None]
  - NERVE INJURY [None]
  - OBSESSIVE-COMPULSIVE DISORDER [None]
  - RENAL FAILURE [None]
  - SEPSIS [None]
